FAERS Safety Report 16592139 (Version 1)
Quarter: 2019Q3

REPORT INFORMATION
  Report Type: Spontaneous
  Country: DE (occurrence: DE)
  Receive Date: 20190718
  Receipt Date: 20190718
  Transmission Date: 20191004
  Serious: Yes (Hospitalization, Other)
  Sender: FDA-Public Use
  Company Number: DE-MYLANLABS-2019M1066651

PATIENT
  Sex: Female

DRUGS (8)
  1. VALSARTAN HEXAL [Suspect]
     Active Substance: VALSARTAN
     Dosage: UNK UNK, QD
     Route: 065
  2. IBUPROFEN. [Concomitant]
     Active Substance: IBUPROFEN
     Indication: PRODUCT USED FOR UNKNOWN INDICATION
     Dosage: 400 MG, TID (1-1-1)
     Route: 065
  3. CLEXANE [Concomitant]
     Active Substance: ENOXAPARIN SODIUM
     Indication: PRODUCT USED FOR UNKNOWN INDICATION
     Dosage: 0.4 ML, QD (0-0-1)
     Route: 058
  4. ATORVASTATIN [Concomitant]
     Active Substance: ATORVASTATIN
     Indication: PRODUCT USED FOR UNKNOWN INDICATION
     Dosage: 20 MG, QD (0-0-1)
     Route: 065
  5. PANTOZOL [Concomitant]
     Active Substance: PANTOPRAZOLE SODIUM
     Indication: PRODUCT USED FOR UNKNOWN INDICATION
     Dosage: 40 MG, QD (1-0-0)
     Route: 065
  6. VALSARTAN HEXAL [Suspect]
     Active Substance: VALSARTAN
     Indication: PRODUCT USED FOR UNKNOWN INDICATION
     Dosage: UNK UNK, QD
     Route: 065
     Dates: start: 201211, end: 2014
  7. ESPIRONOLACTON [Concomitant]
     Active Substance: SPIRONOLACTONE
     Indication: PRODUCT USED FOR UNKNOWN INDICATION
     Dosage: 25 MG, QD (1-0-0)
     Route: 065
  8. HYDROCHLOROTHIAZIDE/VALSARTAN [Suspect]
     Active Substance: HYDROCHLOROTHIAZIDE\VALSARTAN
     Indication: PRODUCT USED FOR UNKNOWN INDICATION
     Dosage: UNK UNK, QD (1-0-0)
     Route: 065

REACTIONS (21)
  - Hepatic cancer [Unknown]
  - Hyperhidrosis [Unknown]
  - Cholestasis [Unknown]
  - Immune system disorder [Unknown]
  - Herpes virus infection [Unknown]
  - Nasopharyngitis [Unknown]
  - Postoperative delirium [Recovered/Resolved]
  - Liver function test increased [Unknown]
  - Ascites [Recovering/Resolving]
  - Scar pain [Unknown]
  - Night sweats [Unknown]
  - Endoscopic retrograde cholangiopancreatography [Unknown]
  - Muscle spasms [Unknown]
  - Peritonitis [Recovering/Resolving]
  - Gastrointestinal disorder [Unknown]
  - Chills [Recovering/Resolving]
  - Dyspnoea [Unknown]
  - Nausea [Unknown]
  - Cholangiocarcinoma [Unknown]
  - Pancreatitis [Unknown]
  - Pyrexia [Unknown]

NARRATIVE: CASE EVENT DATE: 2016
